FAERS Safety Report 19040757 (Version 1)
Quarter: 2021Q1

REPORT INFORMATION
  Report Type: Spontaneous
  Country: NL (occurrence: NL)
  Receive Date: 20210323
  Receipt Date: 20210323
  Transmission Date: 20210420
  Serious: Yes (Other)
  Sender: FDA-Public Use
  Company Number: NL-NOVOPROD-795207

PATIENT
  Sex: Female

DRUGS (4)
  1. NOVORAPID [Suspect]
     Active Substance: INSULIN ASPART
     Dosage: INJECTION SOLUTION, 100 UNITS /ML (UNITS PER MILLILITER)
     Route: 065
     Dates: start: 202101, end: 20210216
  2. GLUCAGEN HYPOKIT [Concomitant]
     Active Substance: GLUCAGON HYDROCHLORIDE
     Dosage: POWDER INJECTION LIQUID, 1 MG (MILLIGRAM)
     Route: 065
  3. GREPID [Concomitant]
     Active Substance: CLOPIDOGREL BESILATE
     Dosage: TABLET, 75 MG (MILLIGRAM)
     Route: 065
  4. NOVORAPID [Suspect]
     Active Substance: INSULIN ASPART
     Indication: DIABETES MELLITUS
     Dosage: INJECTION SOLUTION, 100 UNITS /ML (UNITS PER MILLILITER)
     Route: 065

REACTIONS (2)
  - Loss of consciousness [Recovered/Resolved]
  - Paraesthesia oral [Recovered/Resolved]
